FAERS Safety Report 25969626 (Version 2)
Quarter: 2025Q4

REPORT INFORMATION
  Report Type: Report from Study
  Country: US (occurrence: US)
  Receive Date: 20251028
  Receipt Date: 20251104
  Transmission Date: 20260118
  Serious: Yes (Hospitalization)
  Sender: ABBVIE
  Company Number: US-ABBVIE-6516432

PATIENT
  Age: 65 Year
  Sex: Female

DRUGS (1)
  1. HUMIRA [Suspect]
     Active Substance: ADALIMUMAB
     Indication: Product used for unknown indication
     Route: 058
     Dates: start: 20041101, end: 20251021

REACTIONS (3)
  - Fall [Not Recovered/Not Resolved]
  - Cardiac disorder [Recovering/Resolving]
  - Mobility decreased [Unknown]

NARRATIVE: CASE EVENT DATE: 20250901
